FAERS Safety Report 19880112 (Version 2)
Quarter: 2021Q4

REPORT INFORMATION
  Report Type: Report from Study
  Country: JP (occurrence: JP)
  Receive Date: 20210924
  Receipt Date: 20211013
  Transmission Date: 20220303
  Serious: Yes (Hospitalization)
  Sender: FDA-Public Use
  Company Number: JP-ROCHE-2909395

PATIENT
  Age: 67 Year
  Sex: Female
  Weight: 46.8 kg

DRUGS (5)
  1. ADO-TRASTUZUMAB EMTANSINE [Suspect]
     Active Substance: ADO-TRASTUZUMAB EMTANSINE
     Indication: Breast cancer metastatic
     Route: 042
     Dates: start: 20210804, end: 20210826
  2. TUCATINIB [Suspect]
     Active Substance: TUCATINIB
     Indication: Breast cancer metastatic
     Route: 048
     Dates: start: 20210804, end: 20210907
  3. IMIDAPRIL HYDROCHLORIDE [Concomitant]
     Active Substance: IMIDAPRIL HYDROCHLORIDE
  4. COMIRNATY [Concomitant]
     Active Substance: TOZINAMERAN
     Dates: start: 20210803, end: 20210824
  5. CALONAL [Concomitant]
     Active Substance: ACETAMINOPHEN
     Dates: start: 20210828, end: 20210829

REACTIONS (3)
  - Aspartate aminotransferase increased [Not Recovered/Not Resolved]
  - Alanine aminotransferase increased [Not Recovered/Not Resolved]
  - Liver disorder [Not Recovered/Not Resolved]

NARRATIVE: CASE EVENT DATE: 20210907
